FAERS Safety Report 10584897 (Version 1)
Quarter: 2014Q4

REPORT INFORMATION
  Report Type: Spontaneous
  Country: SE (occurrence: SE)
  Receive Date: 20141114
  Receipt Date: 20141114
  Transmission Date: 20150529
  Serious: Yes (Other)
  Sender: FDA-Public Use
  Company Number: SE-009507513-1411SWE005280

PATIENT
  Age: 91 Year
  Sex: Female

DRUGS (12)
  1. NORGESIC (ACETAMINOPHEN (+) ORPHENADRINE CITRATE) [Concomitant]
  2. NORSPAN (BUPRENORPHINE) [Concomitant]
  3. LASIX [Concomitant]
     Active Substance: FUROSEMIDE
  4. ALVEDON [Concomitant]
     Active Substance: ACETAMINOPHEN
  5. NITROLINGUAL [Concomitant]
     Active Substance: NITROGLYCERIN
     Route: 060
  6. ENALAPRIL COMP [Concomitant]
  7. METOPROLOL TARTRATE. [Concomitant]
     Active Substance: METOPROLOL TARTRATE
  8. WARAN [Concomitant]
     Active Substance: WARFARIN SODIUM
  9. ALENDRONAT [Concomitant]
     Active Substance: ALENDRONATE SODIUM
     Dosage: UNK, QW
  10. FOSAMAX [Suspect]
     Active Substance: ALENDRONATE SODIUM
     Indication: OSTEOPOROSIS
     Dates: end: 2013
  11. CALCICHEW D3 [Concomitant]
     Active Substance: CALCIUM\CHOLECALCIFEROL
  12. LEVAXIN [Concomitant]
     Active Substance: LEVOTHYROXINE SODIUM

REACTIONS (1)
  - Femur fracture [Recovered/Resolved with Sequelae]

NARRATIVE: CASE EVENT DATE: 20131206
